FAERS Safety Report 10133955 (Version 1)
Quarter: 2014Q2

REPORT INFORMATION
  Report Type: Spontaneous
  Country: GR (occurrence: GR)
  Receive Date: 20140428
  Receipt Date: 20140428
  Transmission Date: 20141212
  Serious: Yes (Death, Other)
  Sender: FDA-Public Use
  Company Number: PHHY2014GR047786

PATIENT
  Age: 73 Year
  Sex: Female

DRUGS (2)
  1. ACENOCOUMAROL [Suspect]
  2. HEPARIN [Suspect]

REACTIONS (2)
  - Death [Fatal]
  - Pulmonary haemorrhage [Unknown]
